FAERS Safety Report 6607144-4 (Version None)
Quarter: 2010Q1

REPORT INFORMATION
  Report Type: 
  Country: None (occurrence: None)
  Receive Date: 20100212
  Receipt Date: 20091215
  Transmission Date: 20100710
  Serious: Yes (Other)
  Sender: FDA-Public Use
  Company Number: 1000010799

PATIENT
  Age: 35 Year
  Sex: Male

DRUGS (14)
  1. SAVELLA [Suspect]
     Indication: FIBROMYALGIA
     Dosage: 12.5 MG (12.5 MG, 1 IN 1 D), ORAL : 25 MG (12.5 MG, 2 IN 1 D), ORAL : 50 MG (25 MG, 2 IN 1 D), ORAL
     Route: 048
     Dates: start: 20091130, end: 20091130
  2. SAVELLA [Suspect]
     Indication: FIBROMYALGIA
     Dosage: 12.5 MG (12.5 MG, 1 IN 1 D), ORAL : 25 MG (12.5 MG, 2 IN 1 D), ORAL : 50 MG (25 MG, 2 IN 1 D), ORAL
     Route: 048
     Dates: start: 20091201, end: 20091202
  3. SAVELLA [Suspect]
     Indication: FIBROMYALGIA
     Dosage: 12.5 MG (12.5 MG, 1 IN 1 D), ORAL : 25 MG (12.5 MG, 2 IN 1 D), ORAL : 50 MG (25 MG, 2 IN 1 D), ORAL
     Route: 048
     Dates: start: 20091203, end: 20091206
  4. SAVELLA [Suspect]
     Indication: FIBROMYALGIA
     Dosage: 100 MG (50 MG, 2 IN 1 D), ORAL
     Route: 048
     Dates: start: 20091207, end: 20091211
  5. BUPROPION HCL [Concomitant]
  6. PRISTIQ [Concomitant]
  7. OMEPRAZOLE [Concomitant]
  8. PROMETHAZINE [Concomitant]
  9. ACYCLOVIR [Concomitant]
  10. MINOCYCLINE HCL [Concomitant]
  11. PREDNISONE [Concomitant]
  12. CYCLOBENZAPRINE [Concomitant]
  13. ZINC [Concomitant]
  14. CRANBERRY PILL [Concomitant]

REACTIONS (3)
  - ABNORMAL BEHAVIOUR [None]
  - HYPERHIDROSIS [None]
  - SEROTONIN SYNDROME [None]
